FAERS Safety Report 21294953 (Version 1)
Quarter: 2022Q3

REPORT INFORMATION
  Report Type: Report from Study
  Country: CO (occurrence: CO)
  Receive Date: 20220905
  Receipt Date: 20220905
  Transmission Date: 20221026
  Serious: Yes (Other)
  Sender: FDA-Public Use
  Company Number: CO-NOVARTISPH-NVSC2022CO188938

PATIENT
  Sex: Female

DRUGS (1)
  1. BROLUCIZUMAB [Suspect]
     Active Substance: BROLUCIZUMAB
     Indication: Macular degeneration
     Dosage: UNK, QMO (IN THE EYE) (SOLUTION)
     Route: 047

REACTIONS (3)
  - Blindness unilateral [Unknown]
  - Choroidal effusion [Unknown]
  - Eye disorder [Unknown]
